FAERS Safety Report 4373368-2 (Version None)
Quarter: 2004Q2

REPORT INFORMATION
  Report Type: 
  Country: None (occurrence: None)
  Receive Date: 20040603
  Receipt Date: 20040526
  Transmission Date: 20050107
  Serious: Yes (Other)
  Sender: FDA-Public Use
  Company Number: US-JNJFOC-20040506507

PATIENT
  Age: 55 Year
  Sex: Male
  Weight: 104.3273 kg

DRUGS (4)
  1. TOPAMAX [Suspect]
     Indication: TRIGEMINAL NEURALGIA
     Dosage: 200 MG, 2 IN 1 DAY, ORAL
     Route: 048
  2. NEURONTIN [Concomitant]
  3. HYDRALAZINE HCL TAB [Concomitant]
  4. CANDESARTAN (CANDESARTAN) [Concomitant]

REACTIONS (1)
  - HEAT STROKE [None]
